FAERS Safety Report 8606905-X (Version None)
Quarter: 2012Q3

REPORT INFORMATION
  Report Type: 
  Country: None (occurrence: None)
  Receive Date: 20120820
  Receipt Date: 20120814
  Transmission Date: 20120928
  Serious: Yes (Hospitalization)
  Sender: FDA-Public Use
  Company Number: JP-BAXTER-2011BH036793

PATIENT
  Sex: Male
  Weight: 63 kg

DRUGS (7)
  1. BROTIZOLAM [Concomitant]
     Route: 048
  2. LANSOPRAZOLE [Concomitant]
     Route: 048
  3. DILTIAZEM HYDROCHLORIDE [Suspect]
     Indication: BLOOD PRESSURE MANAGEMENT
     Route: 048
     Dates: start: 20111111, end: 20111118
  4. LANSOPRAZOLE [Concomitant]
     Indication: GASTRITIS PROPHYLAXIS
     Route: 048
     Dates: start: 20111111, end: 20111117
  5. DIANEAL PD-2 W/ DEXTROSE 4.25% [Suspect]
     Route: 033
     Dates: start: 20111111, end: 20111116
  6. DIANEAL PD-2 W/ DEXTROSE 4.25% [Suspect]
     Route: 033
  7. BROTIZOLAM [Concomitant]
     Indication: INSOMNIA
     Route: 048
     Dates: start: 20111111, end: 20111116

REACTIONS (1)
  - RASH [None]
